FAERS Safety Report 5776624-6 (Version None)
Quarter: 2008Q2

REPORT INFORMATION
  Report Type: 
  Country: None (occurrence: None)
  Receive Date: 20080618
  Receipt Date: 20080428
  Transmission Date: 20081010
  Serious: No
  Sender: FDA-Public Use
  Company Number: US-ASTRAZENECA-2008UW05605

PATIENT
  Age: 74 Year
  Sex: Female
  Weight: 71.7 kg

DRUGS (11)
  1. SYMBICORT [Suspect]
     Indication: ASTHMA
     Dosage: 160/4.5 MCG- 2 PUFFS BID
     Route: 055
  2. SYMBICORT [Suspect]
     Indication: HYPERSENSITIVITY
     Dosage: 160/4.5 MCG- 2 PUFFS BID
     Route: 055
  3. SYMBICORT [Suspect]
     Dosage: 160/4.5 MCG- 2 PUFFS DAILY
     Route: 055
  4. SYMBICORT [Suspect]
     Dosage: 160/4.5 MCG- 2 PUFFS DAILY
     Route: 055
  5. SYMBICORT [Suspect]
     Dosage: 160/4.5 MCG- 2 PUFFS QAM
     Route: 055
     Dates: start: 20080411
  6. SYMBICORT [Suspect]
     Dosage: 160/4.5 MCG- 2 PUFFS QAM
     Route: 055
     Dates: start: 20080411
  7. NORVASC [Concomitant]
  8. EVOXAC [Concomitant]
     Indication: DRY MOUTH
  9. ALBUTEROL [Concomitant]
     Route: 055
  10. SINGULAIR [Concomitant]
  11. TYLENOL [Concomitant]

REACTIONS (8)
  - GINGIVAL SWELLING [None]
  - INSOMNIA [None]
  - LYMPHOEDEMA [None]
  - PARAESTHESIA ORAL [None]
  - STOMATITIS [None]
  - SWOLLEN TONGUE [None]
  - THROAT IRRITATION [None]
  - THROAT LESION [None]
